FAERS Safety Report 12105818 (Version 1)
Quarter: 2016Q1

REPORT INFORMATION
  Report Type: Spontaneous
  Country: US (occurrence: None)
  Receive Date: 20160222
  Receipt Date: 20160222
  Transmission Date: 20160526
  Serious: Yes (Disabling)
  Sender: FDA-Public Use
  Company Number: None

PATIENT
  Age: 53 Year
  Sex: Female
  Weight: 63.5 kg

DRUGS (12)
  1. HYQVIA [Suspect]
     Active Substance: HUMAN IMMUNOGLOBULIN G\HYALURONIDASE RECOMBINANT HUMAN
     Indication: BLOOD IMMUNOGLOBULIN G DECREASED
     Dosage: EVERY FOUR WEEKS, GIVEN INTO/UNDER THE SKIN
     Route: 058
     Dates: start: 20150526, end: 20160215
  2. PRREMARIN ESTROGEN [Concomitant]
  3. WELLBUTRIN [Concomitant]
     Active Substance: BUPROPION HYDROCHLORIDE
  4. FISH OIL [Concomitant]
     Active Substance: FISH OIL
  5. CRESTOR [Concomitant]
     Active Substance: ROSUVASTATIN CALCIUM
  6. GLUCOSAMINE [Concomitant]
     Active Substance: GLUCOSAMINE
  7. BACTRIM [Concomitant]
     Active Substance: SULFAMETHOXAZOLE\TRIMETHOPRIM
  8. PROBIOTIC [Concomitant]
     Active Substance: PROBIOTICS NOS
  9. ADDERALL [Concomitant]
     Active Substance: AMPHETAMINE ASPARTATE\AMPHETAMINE SULFATE\DEXTROAMPHETAMINE SACCHARATE\DEXTROAMPHETAMINE SULFATE
  10. LORAZEPAM. [Concomitant]
     Active Substance: LORAZEPAM
  11. LEXAPRO [Concomitant]
     Active Substance: ESCITALOPRAM OXALATE
  12. VITAMIN D [Concomitant]
     Active Substance: CHOLECALCIFEROL

REACTIONS (5)
  - Drug ineffective [None]
  - Urinary tract disorder [None]
  - Dyspareunia [None]
  - Endometriosis [None]
  - Vulvovaginal burning sensation [None]

NARRATIVE: CASE EVENT DATE: 20160215
